FAERS Safety Report 14137209 (Version 5)
Quarter: 2020Q1

REPORT INFORMATION
  Report Type: Report from Study
  Country: CA (occurrence: CA)
  Receive Date: 20171027
  Receipt Date: 20200318
  Transmission Date: 20200409
  Serious: Yes (Other)
  Sender: FDA-Public Use
  Company Number: CA-GLAXOSMITHKLINE-CA2017GSK164196

PATIENT
  Age: 67 Year
  Sex: Female

DRUGS (2)
  1. SALBUTAMOL SULPHATE [Suspect]
     Active Substance: ALBUTEROL SULFATE
     Indication: PRODUCT USED FOR UNKNOWN INDICATION
     Dosage: UNK
  2. NUCALA [Suspect]
     Active Substance: MEPOLIZUMAB
     Indication: ASTHMA
     Dosage: 100 MG, Z(MONTHLY)
     Route: 042
     Dates: start: 20171129

REACTIONS (7)
  - Immune system disorder [Unknown]
  - Visual impairment [Unknown]
  - Blood pressure increased [Unknown]
  - Anal cancer [Unknown]
  - Rectal cancer [Unknown]
  - Anxiety [Unknown]
  - Pneumonia [Unknown]

NARRATIVE: CASE EVENT DATE: 201509
